FAERS Safety Report 5563568-8 (Version None)
Quarter: 2007Q4

REPORT INFORMATION
  Report Type: 
  Country: None (occurrence: None)
  Receive Date: 20071217
  Receipt Date: 20070627
  Transmission Date: 20080405
  Serious: No
  Sender: FDA-Public Use
  Company Number: US-ASTRAZENECA-2007UW15310

PATIENT
  Age: 71 Year
  Sex: Female
  Weight: 65.8 kg

DRUGS (4)
  1. CRESTOR [Suspect]
     Indication: BLOOD CHOLESTEROL INCREASED
     Route: 048
  2. ATENOLOL [Concomitant]
  3. DIGOXIN [Concomitant]
  4. BOOST [Concomitant]
     Indication: WEIGHT INCREASED

REACTIONS (2)
  - WEIGHT DECREASED [None]
  - WEIGHT GAIN POOR [None]
